FAERS Safety Report 4849154-3 (Version None)
Quarter: 2005Q4

REPORT INFORMATION
  Report Type: 
  Country: None (occurrence: None)
  Receive Date: 20051209
  Receipt Date: 20051130
  Transmission Date: 20060501
  Serious: Yes (Life-Threatening)
  Sender: FDA-Public Use
  Company Number: US-MERCK-0512USA00281

PATIENT
  Sex: Female

DRUGS (2)
  1. VIOXX [Suspect]
     Indication: ARTHRITIS
     Route: 048
  2. VIOXX [Suspect]
     Indication: ARTHRALGIA
     Route: 048

REACTIONS (4)
  - ARRHYTHMIA [None]
  - EMOTIONAL DISTRESS [None]
  - HEART INJURY [None]
  - POLYTRAUMATISM [None]
